FAERS Safety Report 21775792 (Version 1)
Quarter: 2022Q4

REPORT INFORMATION
  Report Type: Spontaneous
  Country: EG (occurrence: EG)
  Receive Date: 20221226
  Receipt Date: 20221226
  Transmission Date: 20230113
  Serious: Yes (Life-Threatening, Other)
  Sender: FDA-Public Use
  Company Number: EG-SA-SAC20221222001399

PATIENT
  Age: 29 Year
  Sex: Female
  Weight: 75 kg

DRUGS (3)
  1. FEXOFENADINE [Suspect]
     Active Substance: FEXOFENADINE HYDROCHLORIDE
     Indication: Hypersensitivity
     Dosage: 2 TABLETS ORALLY A DAY
     Route: 048
     Dates: start: 20210620, end: 20221030
  2. EVASTINE [Concomitant]
     Indication: Hypersensitivity
     Dosage: 2 TABLETS ORALLY A DAY
     Route: 048
     Dates: start: 20221201, end: 20221206
  3. ALLERBAN [LORATADINE] [Concomitant]
     Indication: Hypersensitivity
     Dosage: 2 TABLETS ORALLY A DAY
     Route: 048

REACTIONS (5)
  - Suicidal behaviour [Recovered/Resolved]
  - Self-injurious ideation [Recovered/Resolved]
  - Nightmare [Recovered/Resolved]
  - Abdominal pain upper [Recovered/Resolved]
  - Insomnia [Recovered/Resolved]

NARRATIVE: CASE EVENT DATE: 20221030
